FAERS Safety Report 10229703 (Version 2)
Quarter: 2014Q2

REPORT INFORMATION
  Report Type: Spontaneous
  Country: DE (occurrence: DE)
  Receive Date: 20140611
  Receipt Date: 20140611
  Transmission Date: 20141212
  Serious: Yes (Other)
  Sender: FDA-Public Use
  Company Number: PHHY2014DE052342

PATIENT
  Sex: Male

DRUGS (1)
  1. EXJADE [Suspect]
     Indication: BLOOD DISORDER
     Dosage: UNK UKN, UNK
     Dates: start: 201106, end: 201312

REACTIONS (11)
  - Pneumonia [Unknown]
  - Sepsis [Unknown]
  - Renal failure [Not Recovered/Not Resolved]
  - Thrombocytopenia [Not Recovered/Not Resolved]
  - Infection [Unknown]
  - Systemic lupus erythematosus [Unknown]
  - Haemochromatosis [Unknown]
  - Drug intolerance [Unknown]
  - Incorrect dose administered [Unknown]
  - Therapeutic response decreased [Unknown]
  - Nausea [Unknown]
